FAERS Safety Report 9642454 (Version 1)
Quarter: 2013Q4

REPORT INFORMATION
  Report Type: Spontaneous
  Country: US (occurrence: US)
  Receive Date: 20131024
  Receipt Date: 20131024
  Transmission Date: 20140711
  Serious: Yes (Hospitalization)
  Sender: FDA-Public Use
  Company Number: US-BRISTOL-MYERS SQUIBB COMPANY-19574144

PATIENT
  Age: 43 Year
  Sex: Male

DRUGS (1)
  1. SPRYCEL [Suspect]
     Indication: CHRONIC MYELOID LEUKAEMIA
     Dosage: RESTARTED:06OCT2013

REACTIONS (2)
  - Blood potassium abnormal [Unknown]
  - Medication error [Unknown]
